FAERS Safety Report 17735636 (Version 1)
Quarter: 2020Q2

REPORT INFORMATION
  Report Type: Spontaneous
  Country: US (occurrence: US)
  Receive Date: 20200501
  Receipt Date: 20200501
  Transmission Date: 20200714
  Serious: No
  Sender: FDA-Public Use
  Company Number: US-FRESENIUS KABI-FK202004345

PATIENT

DRUGS (1)
  1. DILAUDID [Suspect]
     Active Substance: HYDROMORPHONE HYDROCHLORIDE
     Indication: PAIN MANAGEMENT
     Dosage: UNKNOWN
     Route: 050

REACTIONS (2)
  - Product administration error [Unknown]
  - Hypertension [Unknown]

NARRATIVE: CASE EVENT DATE: 20200425
